FAERS Safety Report 24348434 (Version 1)
Quarter: 2024Q3

REPORT INFORMATION
  Report Type: Spontaneous
  Country: US (occurrence: US)
  Receive Date: 20240923
  Receipt Date: 20240923
  Transmission Date: 20241016
  Serious: No
  Sender: AUROBINDO
  Company Number: US-AUROBINDO-AUR-APL-2024-035974

PATIENT
  Age: 54 Year
  Sex: Female
  Weight: 76.204 kg

DRUGS (4)
  1. CARISOPRODOL [Suspect]
     Active Substance: CARISOPRODOL
     Indication: Pain
     Dosage: 350 MILLIGRAM, ONCE A DAY, IN THE MORNING
     Route: 065
     Dates: start: 20240723
  2. CARISOPRODOL [Suspect]
     Active Substance: CARISOPRODOL
     Indication: Arthritis
  3. QUETIAPINE [Concomitant]
     Active Substance: QUETIAPINE
     Indication: Mood swings
     Dosage: UNK
     Route: 065
  4. XANAX [Concomitant]
     Active Substance: ALPRAZOLAM
     Indication: Product used for unknown indication
     Dosage: 0.25 MILLIGRAM, TWO TIMES A DAY
     Route: 065

REACTIONS (1)
  - Drug ineffective [Unknown]

NARRATIVE: CASE EVENT DATE: 20240723
